FAERS Safety Report 26206156 (Version 1)
Quarter: 2025Q4

REPORT INFORMATION
  Report Type: Spontaneous
  Country: JP (occurrence: JP)
  Receive Date: 20251229
  Receipt Date: 20251229
  Transmission Date: 20260118
  Serious: Yes (Hospitalization)
  Sender: GLAXOSMITHKLINE
  Company Number: JP-GSKJP-JP2025JPN166047AA

PATIENT
  Age: 76 Year
  Sex: Male

DRUGS (1)
  1. DAPRODUSTAT [Suspect]
     Active Substance: DAPRODUSTAT
     Dosage: 8 MG, QD

REACTIONS (4)
  - Hospitalisation [Unknown]
  - Catheter placement [Unknown]
  - Platelet count decreased [Unknown]
  - Haemoglobin abnormal [Unknown]
